FAERS Safety Report 5751374-0 (Version None)
Quarter: 2008Q2

REPORT INFORMATION
  Report Type: 
  Country: None (occurrence: None)
  Receive Date: 20080528
  Receipt Date: 20080516
  Transmission Date: 20081010
  Serious: Yes (Other)
  Sender: FDA-Public Use
  Company Number: FR-PFIZER INC-2008043211

PATIENT
  Age: 24 Year
  Sex: Female

DRUGS (3)
  1. LYRICA [Suspect]
  2. ANAFRANIL [Concomitant]
  3. TRILEPTAL [Concomitant]

REACTIONS (1)
  - PANCYTOPENIA [None]
